FAERS Safety Report 23162410 (Version 1)
Quarter: 2023Q4

REPORT INFORMATION
  Report Type: Spontaneous
  Country: US (occurrence: US)
  Receive Date: 20231109
  Receipt Date: 20231109
  Transmission Date: 20240110
  Serious: No
  Sender: FDA-Public Use
  Company Number: US-ELI_LILLY_AND_COMPANY-US202311005189

PATIENT
  Age: 85 Year
  Sex: Female

DRUGS (4)
  1. HUMULIN N [Suspect]
     Active Substance: INSULIN HUMAN
     Indication: Diabetes mellitus
     Dosage: 100 U, UNKNOWN
     Route: 058
  2. HUMULIN N [Suspect]
     Active Substance: INSULIN HUMAN
     Indication: Diabetes mellitus
     Dosage: 100 U, UNKNOWN
     Route: 058
  3. HUMULIN N [Suspect]
     Active Substance: INSULIN HUMAN
     Dosage: 100 U, UNKNOWN
     Route: 058
  4. HUMULIN N [Suspect]
     Active Substance: INSULIN HUMAN
     Dosage: 100 U, UNKNOWN
     Route: 058

REACTIONS (2)
  - Blood glucose abnormal [Recovered/Resolved]
  - Incorrect product administration duration [Unknown]

NARRATIVE: CASE EVENT DATE: 20230301
